FAERS Safety Report 8410000-2 (Version None)
Quarter: 2012Q2

REPORT INFORMATION
  Report Type: 
  Country: None (occurrence: None)
  Receive Date: 20120605
  Receipt Date: 20120529
  Transmission Date: 20120825
  Serious: Yes (Hospitalization)
  Sender: FDA-Public Use
  Company Number: US-BAYER-2012-012207

PATIENT
  Age: 19 Year
  Sex: Female
  Weight: 102.4 kg

DRUGS (32)
  1. FEC [Concomitant]
     Dosage: UNK
     Dates: start: 20021001
  2. PREDNISONE [Concomitant]
     Dosage: UNK
     Dates: start: 20021001
  3. ZITHROMAX [Concomitant]
     Dosage: UNK
     Dates: start: 20021001
  4. IBUPROFEN [Concomitant]
  5. DEPLIN [Concomitant]
     Dosage: UNK
     Dates: start: 20021001
  6. FRAGMIN [Concomitant]
     Dosage: UNK
     Dates: start: 20021001
  7. PENICILLIN [Concomitant]
     Dosage: UNK
     Dates: start: 20021001
  8. POLYETHYLENE [Concomitant]
     Dosage: UNK
     Dates: start: 20021001
  9. CEFUROXIME [Concomitant]
  10. WELLBUTRIN [Concomitant]
  11. ENOXAPARIN [Concomitant]
     Dosage: UNK
     Dates: start: 20021001
  12. HYOSCYAMINE [Concomitant]
     Dosage: UNK
     Dates: start: 20021001
  13. LEXAPRO [Concomitant]
     Dosage: UNK
     Dates: start: 20021001
  14. TRIAMCINOLONE [Concomitant]
     Dosage: UNK
     Dates: start: 20021001
  15. WARFARIN [Concomitant]
     Dosage: UNK
     Dates: start: 20021001
  16. HYDROCODONE [Concomitant]
     Dosage: UNK
     Dates: start: 20021001
  17. AZITHROMYCIN [Concomitant]
     Dosage: UNK
     Dates: start: 20021001
  18. DENAVIR [Concomitant]
     Dosage: UNK
     Dates: start: 20021001
  19. KETOROLAC TROMETHAMINE [Concomitant]
     Dosage: UNK
     Dates: start: 20021001
  20. DOXYCYCLINE [Concomitant]
     Dosage: UNK
     Dates: start: 20021001
  21. FLUOXETINE [Concomitant]
     Dosage: UNK
     Dates: start: 20021001
  22. LIDOCAINE [Concomitant]
     Dosage: UNK
     Dates: start: 20021001
  23. LOESTRIN 1.5/30 [Concomitant]
     Dosage: UNK
     Dates: start: 20021001
  24. MOTRIN [Concomitant]
     Dosage: UNK UNK, PRN
     Dates: start: 20090101
  25. DROSPIRENONE AND ETHINYL ESTRADIOL [Suspect]
     Indication: CONTRACEPTION
     Dosage: UNK
     Dates: start: 20100801, end: 20110101
  26. OXYCODONE HYDROCHLORIDE [Concomitant]
     Dosage: UNK
     Dates: start: 20021001
  27. SKELAXIN [Concomitant]
     Dosage: UNK
     Dates: start: 20021001
  28. TOBRADEX [Concomitant]
     Dosage: UNK
     Dates: start: 20021001
  29. AMOXICILLIN [Concomitant]
     Dosage: UNK
     Dates: start: 20021001
  30. CEPHALEXIN [Concomitant]
     Dosage: UNK
     Dates: start: 20021001
  31. VALACICLOVIR [Concomitant]
     Dosage: UNK
     Dates: start: 20021001
  32. SOFTENERS, EMOLLIENTS [Concomitant]

REACTIONS (8)
  - EMOTIONAL DISTRESS [None]
  - ANXIETY [None]
  - DEEP VEIN THROMBOSIS [None]
  - GENERAL PHYSICAL HEALTH DETERIORATION [None]
  - PULMONARY EMBOLISM [None]
  - INJURY [None]
  - PULMONARY INFARCTION [None]
  - PAIN [None]
